FAERS Safety Report 24346392 (Version 1)
Quarter: 2024Q3

REPORT INFORMATION
  Report Type: Spontaneous
  Country: US (occurrence: US)
  Receive Date: 20240921
  Receipt Date: 20240921
  Transmission Date: 20241017
  Serious: No
  Sender: MERCK
  Company Number: US-009507513-2408USA009932

PATIENT
  Age: 37 Year
  Sex: Female

DRUGS (2)
  1. TEMODAR [Suspect]
     Active Substance: TEMOZOLOMIDE
     Indication: Bone cancer
     Dosage: 100 MG + 20 MG 1 TIME A DAY FOR 5 DAYS OF 28 DAY CYCLE
  2. CABOMETYX [Suspect]
     Active Substance: CABOZANTINIB S-MALATE
     Indication: Bone cancer
     Dosage: 60 MILLIGRAM, QD
     Route: 048
     Dates: start: 202406, end: 202408

REACTIONS (2)
  - Hospice care [Unknown]
  - Off label use [Unknown]
